FAERS Safety Report 5469240-7 (Version None)
Quarter: 2007Q3

REPORT INFORMATION
  Report Type: 
  Country: None (occurrence: None)
  Receive Date: 20070925
  Receipt Date: 20070925
  Transmission Date: 20080115
  Serious: Yes (Disabling, Other)
  Sender: FDA-Public Use
  Company Number: None

PATIENT
  Age: 54 Year
  Sex: Female
  Weight: 61.2356 kg

DRUGS (1)
  1. ALLEGRA D 24 HOUR [Suspect]
     Indication: HYPERSENSITIVITY
     Dosage: 1  ONCE DAILY PO
     Route: 048
     Dates: start: 20070907, end: 20070916

REACTIONS (8)
  - CHEST PAIN [None]
  - DYSPEPSIA [None]
  - FOOD POISONING [None]
  - MEDICATION RESIDUE [None]
  - PHARMACEUTICAL PRODUCT COMPLAINT [None]
  - POISONING [None]
  - POOR QUALITY DRUG ADMINISTERED [None]
  - TREMOR [None]
